FAERS Safety Report 4538549-3 (Version None)
Quarter: 2004Q4

REPORT INFORMATION
  Report Type: 
  Country: None (occurrence: None)
  Receive Date: 20041222
  Receipt Date: 20041207
  Transmission Date: 20050328
  Serious: Yes (Hospitalization)
  Sender: FDA-Public Use
  Company Number: A01200406233

PATIENT
  Age: 83 Year
  Sex: Male

DRUGS (4)
  1. KERLONE [Suspect]
     Indication: ATRIAL FIBRILLATION
     Dosage: ORAL
     Route: 048
     Dates: start: 19800101, end: 20040801
  2. DIGOXIN [Concomitant]
  3. DISOPYRAMIDE [Concomitant]
  4. PROCAINAMIDE [Concomitant]

REACTIONS (6)
  - ATRIAL FIBRILLATION [None]
  - ATRIAL FLUTTER [None]
  - BRADYCARDIA [None]
  - CARDIOGENIC SHOCK [None]
  - DRUG LEVEL INCREASED [None]
  - RENAL IMPAIRMENT [None]
